FAERS Safety Report 25121208 (Version 4)
Quarter: 2025Q2

REPORT INFORMATION
  Report Type: Spontaneous
  Country: DE (occurrence: DE)
  Receive Date: 20250326
  Receipt Date: 20250611
  Transmission Date: 20250717
  Serious: Yes (Hospitalization, Other)
  Sender: AUROBINDO
  Company Number: DE-BRISTOL-MYERS SQUIBB COMPANY-2025-031522

PATIENT
  Age: 69 Year
  Sex: Female
  Weight: 59 kg

DRUGS (27)
  1. CARBOPLATIN [Suspect]
     Active Substance: CARBOPLATIN
     Indication: Non-small cell lung cancer
     Route: 042
     Dates: start: 20240123, end: 20240220
  2. OPDIVO [Suspect]
     Active Substance: NIVOLUMAB
     Indication: Non-small cell lung cancer
     Route: 042
     Dates: start: 20240123
  3. OPDIVO [Suspect]
     Active Substance: NIVOLUMAB
     Route: 042
     Dates: start: 20240909
  4. YERVOY [Suspect]
     Active Substance: IPILIMUMAB
     Indication: Non-small cell lung cancer
     Route: 042
     Dates: start: 20240123, end: 20240604
  5. AMLODIPINE [Concomitant]
     Active Substance: AMLODIPINE BESYLATE
     Indication: Product used for unknown indication
     Route: 065
     Dates: start: 20240213, end: 20240626
  6. LEVOTHYROXINE SODIUM [Concomitant]
     Active Substance: LEVOTHYROXINE SODIUM
     Indication: Product used for unknown indication
     Route: 065
     Dates: end: 20240524
  7. LEVOTHYROXINE SODIUM [Concomitant]
     Active Substance: LEVOTHYROXINE SODIUM
     Route: 065
     Dates: start: 20240525, end: 20240627
  8. LEVOTHYROXINE SODIUM [Concomitant]
     Active Substance: LEVOTHYROXINE SODIUM
     Route: 065
     Dates: start: 20240628
  9. LORAZEPAM [Concomitant]
     Active Substance: LORAZEPAM
     Indication: Product used for unknown indication
     Route: 065
     Dates: start: 20240214, end: 20240219
  10. PANTOPRAZOLE SODIUM [Concomitant]
     Active Substance: PANTOPRAZOLE SODIUM
     Indication: Prophylaxis
     Route: 065
     Dates: start: 20231211
  11. RAMIPRIL [Concomitant]
     Active Substance: RAMIPRIL
     Indication: Product used for unknown indication
     Route: 065
     Dates: end: 20240522
  12. RAMIPRIL [Concomitant]
     Active Substance: RAMIPRIL
     Route: 065
     Dates: start: 20240525, end: 20241014
  13. SITAGLIPTIN [Concomitant]
     Active Substance: SITAGLIPTIN
     Indication: Product used for unknown indication
     Route: 065
     Dates: start: 20231217, end: 20241014
  14. GLYCOPYRRONIUM\INDACATEROL [Concomitant]
     Active Substance: GLYCOPYRRONIUM\INDACATEROL
     Indication: Product used for unknown indication
     Route: 065
     Dates: start: 20231212
  15. PALONOSETRON [Concomitant]
     Active Substance: PALONOSETRON
     Indication: Prophylaxis
     Route: 065
     Dates: start: 20240220, end: 20240220
  16. PALONOSETRON [Concomitant]
     Active Substance: PALONOSETRON
     Route: 065
     Dates: start: 20240123, end: 20240123
  17. DEXAMETHASONE [Concomitant]
     Active Substance: DEXAMETHASONE
     Indication: Prophylaxis
     Route: 065
     Dates: start: 20240220, end: 20240220
  18. DEXAMETHASONE [Concomitant]
     Active Substance: DEXAMETHASONE
     Route: 065
     Dates: start: 20240123, end: 20240123
  19. PREDNISOLONE [Concomitant]
     Active Substance: PREDNISOLONE
     Indication: Product used for unknown indication
     Route: 065
     Dates: start: 20240406, end: 20240410
  20. PREDNISOLONE [Concomitant]
     Active Substance: PREDNISOLONE
     Route: 065
     Dates: start: 20240523, end: 20240527
  21. ATROVENT [Concomitant]
     Active Substance: IPRATROPIUM BROMIDE
     Indication: Product used for unknown indication
     Route: 065
     Dates: start: 20240523, end: 20240527
  22. SULTANOL [Concomitant]
     Active Substance: ALBUTEROL SULFATE
     Indication: Product used for unknown indication
     Route: 065
     Dates: start: 20240523, end: 20240527
  23. CODEINE PHOSPHATE [Concomitant]
     Active Substance: CODEINE PHOSPHATE
     Indication: Product used for unknown indication
     Route: 065
     Dates: start: 20240523, end: 20240526
  24. MELPERONE [Concomitant]
     Active Substance: MELPERONE
     Indication: Product used for unknown indication
     Route: 065
     Dates: start: 20240524, end: 20241014
  25. GLYCOPYRRONIUM\INDACATEROL [Concomitant]
     Active Substance: GLYCOPYRRONIUM\INDACATEROL
     Indication: Product used for unknown indication
     Route: 065
     Dates: start: 20240628, end: 20241014
  26. Unacid [Concomitant]
     Indication: Product used for unknown indication
     Route: 065
     Dates: start: 20240627, end: 20240702
  27. METAMIZOLE [Concomitant]
     Active Substance: METAMIZOLE
     Indication: Product used for unknown indication
     Route: 065
     Dates: start: 20240627

REACTIONS (4)
  - Rheumatoid arthritis [Recovered/Resolved]
  - Arthralgia [Unknown]
  - Musculoskeletal stiffness [Unknown]
  - Eosinophilia [Unknown]

NARRATIVE: CASE EVENT DATE: 20241008
